FAERS Safety Report 15022071 (Version 1)
Quarter: 2018Q2

REPORT INFORMATION
  Report Type: Spontaneous
  Country: US (occurrence: US)
  Receive Date: 20180618
  Receipt Date: 20180618
  Transmission Date: 20180711
  Serious: No
  Sender: FDA-Public Use
  Company Number: US-SA-2018SA156603

PATIENT
  Sex: Male

DRUGS (1)
  1. PRALUENT [Suspect]
     Active Substance: ALIROCUMAB
     Indication: PHENYLKETONURIA
     Dosage: 75 MG, QOW
     Route: 058
     Dates: start: 20180222

REACTIONS (2)
  - Memory impairment [Unknown]
  - Drug dose omission [Unknown]
